FAERS Safety Report 10010191 (Version 1)
Quarter: 2014Q1

REPORT INFORMATION
  Report Type: Spontaneous
  Country: US (occurrence: US)
  Receive Date: 20140312
  Receipt Date: 20140312
  Transmission Date: 20141002
  Serious: No
  Sender: FDA-Public Use
  Company Number: US-INCYTE CORPORATION-2013IN001860

PATIENT
  Age: 62 Year
  Sex: Female

DRUGS (2)
  1. JAKAFI [Suspect]
     Indication: MYELOFIBROSIS
     Dosage: UNK,UNK,UNK
     Route: 048
     Dates: start: 201305
  2. JAKAFI [Suspect]
     Dosage: 25 MG, BID
     Route: 048
     Dates: start: 2013

REACTIONS (2)
  - Splenomegaly [Not Recovered/Not Resolved]
  - Platelet count decreased [Not Recovered/Not Resolved]
